FAERS Safety Report 6082032-3 (Version None)
Quarter: 2009Q1

REPORT INFORMATION
  Report Type: 
  Country: None (occurrence: None)
  Receive Date: 20090218
  Receipt Date: 20080909
  Transmission Date: 20090719
  Serious: No
  Sender: FDA-Public Use
  Company Number: US-BRISTOL-MYERS SQUIBB COMPANY-14329718

PATIENT
  Age: 54 Year
  Sex: Male
  Weight: 82 kg

DRUGS (6)
  1. GLUCOPHAGE [Suspect]
     Indication: DIABETES MELLITUS
     Route: 048
     Dates: start: 20080501, end: 20080601
  2. ANDROGEL [Suspect]
     Indication: BLOOD TESTOSTERONE DECREASED
     Dosage: TRANSCUTANEOUS VIA PUMP INCREASED-7.5GM-MAY08 INCREASED-10G-JUN08 INTERRUPTED + RESTARTED-JUL08
     Dates: start: 20060101
  3. ZETIA [Suspect]
     Indication: BLOOD CHOLESTEROL INCREASED
     Route: 048
     Dates: end: 20080601
  4. GLIPIZIDE [Concomitant]
  5. ACTOS [Concomitant]
  6. WELCHOL [Concomitant]

REACTIONS (6)
  - APPLICATION SITE PARAESTHESIA [None]
  - DIARRHOEA [None]
  - DYSPEPSIA [None]
  - FLATULENCE [None]
  - PAIN IN EXTREMITY [None]
  - PARAESTHESIA [None]
